FAERS Safety Report 7617403-4 (Version None)
Quarter: 2011Q3

REPORT INFORMATION
  Report Type: 
  Country: None (occurrence: None)
  Receive Date: 20110718
  Receipt Date: 20110712
  Transmission Date: 20111222
  Serious: Yes (Other)
  Sender: FDA-Public Use
  Company Number: US-PFIZER INC-2011157857

PATIENT
  Sex: Female
  Weight: 74.376 kg

DRUGS (4)
  1. GEODON [Suspect]
     Indication: ANXIETY DISORDER
     Dosage: 20 MG, DAILY
     Route: 048
  2. DIAZEPAM [Concomitant]
     Dosage: 10 MG, AS NEEDED
  3. BUPROPION [Concomitant]
     Indication: DEPRESSION
     Dosage: 300 MG, DAILY
  4. LAMOTRIGINE [Concomitant]
     Indication: AFFECTIVE DISORDER
     Dosage: 200 MG, DAILY

REACTIONS (4)
  - TREMOR [None]
  - BLOOD GLUCOSE FLUCTUATION [None]
  - AMNESIA [None]
  - PALPITATIONS [None]
